FAERS Safety Report 6843019-3 (Version None)
Quarter: 2010Q3

REPORT INFORMATION
  Report Type: 
  Country: None (occurrence: None)
  Receive Date: 20100714
  Receipt Date: 20080105
  Transmission Date: 20110219
  Serious: Yes (Other)
  Sender: FDA-Public Use
  Company Number: US-PFIZER INC-2007066400

PATIENT
  Sex: Female
  Weight: 77.1 kg

DRUGS (3)
  1. CHANTIX [Suspect]
     Indication: SMOKING CESSATION THERAPY
     Dates: start: 20070701
  2. HYDROCHLOROTHIAZIDE [Concomitant]
  3. XANAX [Concomitant]

REACTIONS (3)
  - FEELING ABNORMAL [None]
  - INSOMNIA [None]
  - RESTLESS LEGS SYNDROME [None]
